FAERS Safety Report 4450883-4 (Version None)
Quarter: 2004Q3

REPORT INFORMATION
  Report Type: 
  Country: None (occurrence: None)
  Receive Date: 20040916
  Receipt Date: 20011016
  Transmission Date: 20050211
  Serious: No
  Sender: FDA-Public Use
  Company Number: US-BRISTOL-MYERS SQUIBB COMPANY-11592177

PATIENT
  Age: 20 Year
  Sex: Female

DRUGS (1)
  1. STADOL [Suspect]
     Dosage: 14+15-AUG-1991: 7 IV INJ RIGHT HIP  24-DEC-1997: 3 IV INJ RIGHT HIP DEC 1999: IM RIGHT HIP
     Route: 042
     Dates: start: 19910814, end: 19991201

REACTIONS (5)
  - ARTHRALGIA [None]
  - BLOOD PRESSURE DECREASED [None]
  - BONE PAIN [None]
  - INJECTION SITE HAEMORRHAGE [None]
  - MIGRAINE [None]
